FAERS Safety Report 11583182 (Version 1)
Quarter: 2015Q4

REPORT INFORMATION
  Report Type: Spontaneous
  Country: US (occurrence: US)
  Receive Date: 20151001
  Receipt Date: 20151001
  Transmission Date: 20160304
  Serious: No
  Sender: FDA-Public Use
  Company Number: US-009507513-1509USA015048

PATIENT
  Sex: Female

DRUGS (1)
  1. NASONEX [Suspect]
     Active Substance: MOMETASONE FUROATE
     Indication: HYPERSENSITIVITY
     Dosage: 50 MICROGRAM, FREQUENCY REPORTED AS ^VARIES^
     Route: 045

REACTIONS (3)
  - Disease recurrence [Unknown]
  - Drug dose omission [Unknown]
  - Product distribution issue [Unknown]

NARRATIVE: CASE EVENT DATE: 2015
